FAERS Safety Report 24944046 (Version 2)
Quarter: 2025Q1

REPORT INFORMATION
  Report Type: Report from Study
  Country: JP (occurrence: JP)
  Receive Date: 20250207
  Receipt Date: 20250214
  Transmission Date: 20250408
  Serious: Yes (Other)
  Sender: ALEXION PHARMACEUTICALS
  Company Number: JP-ASTRAZENECA-240090362_011820_P_1

PATIENT
  Weight: 54.4 kg

DRUGS (2)
  1. KOSELUGO [Suspect]
     Active Substance: SELUMETINIB
     Indication: Neurofibromatosis
  2. KOSELUGO [Suspect]
     Active Substance: SELUMETINIB

REACTIONS (5)
  - Cytopenia [Recovered/Resolved]
  - Abdominal pain [Recovered/Resolved]
  - Platelet count increased [Unknown]
  - Pruritus [Recovered/Resolved]
  - Anaemia [Recovered/Resolved]
